FAERS Safety Report 5978730-X (Version None)
Quarter: 2008Q4

REPORT INFORMATION
  Report Type: 
  Country: None (occurrence: None)
  Receive Date: 20081204
  Receipt Date: 20081124
  Transmission Date: 20090506
  Serious: Yes (Other)
  Sender: FDA-Public Use
  Company Number: GB-AVENTIS-200816813GDDC

PATIENT
  Age: 50 Year
  Sex: Female
  Weight: 64 kg

DRUGS (4)
  1. LANTUS [Suspect]
     Indication: DIABETES MELLITUS
     Route: 058
     Dates: start: 20080710, end: 20080710
  2. LEVEMIR [Concomitant]
  3. NOVORAPID [Concomitant]
     Dosage: DOSE: 4-8
     Route: 058
     Dates: start: 20070101
  4. LEVOTHYROXINE SODIUM [Concomitant]
     Indication: HYPOTHYROIDISM
     Route: 048
     Dates: start: 20010101

REACTIONS (4)
  - DIZZINESS [None]
  - HYPOTENSION [None]
  - OEDEMA [None]
  - VISION BLURRED [None]
